FAERS Safety Report 4841024-X (Version None)
Quarter: 2005Q4

REPORT INFORMATION
  Report Type: 
  Country: None (occurrence: None)
  Receive Date: 20051130
  Receipt Date: 20050826
  Transmission Date: 20060501
  Serious: No
  Sender: FDA-Public Use
  Company Number: US-BRISTOL-MYERS SQUIBB COMPANY-13092366

PATIENT
  Age: 39 Year
  Sex: Female

DRUGS (3)
  1. ABILIFY [Suspect]
     Indication: SCHIZOAFFECTIVE DISORDER
     Route: 048
     Dates: start: 20040101
  2. VENLAFAXINE HCL [Concomitant]
  3. HYDROXYZINE [Concomitant]

REACTIONS (1)
  - PREGNANCY [None]
